FAERS Safety Report 4291920-X (Version None)
Quarter: 2004Q1

REPORT INFORMATION
  Report Type: 
  Country: None (occurrence: None)
  Receive Date: 20040126
  Receipt Date: 20031027
  Transmission Date: 20041129
  Serious: No
  Sender: FDA-Public Use
  Company Number: USA031050836

PATIENT
  Age: 71 Year
  Sex: Female

DRUGS (4)
  1. FORTEO [Suspect]
     Dosage: 20 UG/DAY
     Dates: start: 20030101
  2. ATIVAN [Concomitant]
  3. ZOLOFT [Concomitant]
  4. OXYGEN [Concomitant]

REACTIONS (1)
  - NASOPHARYNGITIS [None]
